FAERS Safety Report 8573133 (Version 9)
Quarter: 2013Q2

REPORT INFORMATION
  Report Type: Report from Study
  Country: BE (occurrence: BE)
  Receive Date: 20120522
  Receipt Date: 20130604
  Transmission Date: 20140414
  Serious: Yes (Hospitalization, Other)
  Sender: FDA-Public Use
  Company Number: PHHY2012BE030711

PATIENT
  Age: 35 Year
  Sex: Female
  Weight: 47 kg

DRUGS (5)
  1. GILENYA [Suspect]
     Indication: MULTIPLE SCLEROSIS
     Dosage: 0.5 MG, QD
     Route: 048
     Dates: start: 20120319, end: 20120411
  2. SIPRALEXA [Concomitant]
     Indication: DEPRESSION
     Dosage: UNK UKN, UNK
     Dates: start: 201203
  3. ORAL CONTRACEPTIVE NOS [Concomitant]
     Dosage: UNK UKN, UNK
  4. VITAMIN D [Concomitant]
     Dosage: UNK UKN, UNK
  5. DAFALGAN [Concomitant]
     Indication: ABDOMINAL PAIN
     Dosage: UNK UKN, UNK

REACTIONS (10)
  - Premature labour [Unknown]
  - Premature delivery [Unknown]
  - Vaginal haemorrhage [Unknown]
  - Placental disorder [Unknown]
  - Varicose vein [Unknown]
  - Nausea [Recovering/Resolving]
  - Vomiting [Recovering/Resolving]
  - Pain in extremity [Not Recovered/Not Resolved]
  - Asthenia [Unknown]
  - Exposure during pregnancy [Unknown]
